FAERS Safety Report 8838935 (Version 1)
Quarter: 2012Q4

REPORT INFORMATION
  Report Type: Spontaneous
  Country: US (occurrence: None)
  Receive Date: 20121011
  Receipt Date: 20121011
  Transmission Date: 20130627
  Serious: No
  Sender: FDA-Public Use
  Company Number: None

PATIENT
  Sex: Male

DRUGS (2)
  1. ENBREL [Suspect]
     Indication: RHEUMATOID ARTHRITIS
     Route: 058
     Dates: start: 20110906
  2. ENBREL [Suspect]
     Indication: INFLAMMATION
     Route: 058
     Dates: start: 20110906

REACTIONS (3)
  - Muscle spasms [None]
  - Skin exfoliation [None]
  - Drug ineffective [None]
